FAERS Safety Report 25939014 (Version 1)
Quarter: 2025Q4

REPORT INFORMATION
  Report Type: Spontaneous
  Country: US (occurrence: US)
  Receive Date: 20251019
  Receipt Date: 20251019
  Transmission Date: 20260118
  Serious: No
  Sender: NOVARTIS
  Company Number: US-002147023-NVSC2025US156392

PATIENT
  Sex: Female

DRUGS (1)
  1. COSENTYX [Suspect]
     Active Substance: SECUKINUMAB
     Indication: Product used for unknown indication
     Dosage: UNK, Q2W (300 MG/2ML)
     Route: 065

REACTIONS (5)
  - Device use error [Unknown]
  - Needle issue [Unknown]
  - Device leakage [Unknown]
  - Condition aggravated [Unknown]
  - Drug dose omission by device [Unknown]
